FAERS Safety Report 24139575 (Version 1)
Quarter: 2024Q3

REPORT INFORMATION
  Report Type: Spontaneous
  Country: TH (occurrence: TH)
  Receive Date: 20240726
  Receipt Date: 20240726
  Transmission Date: 20241017
  Serious: Yes (Other)
  Sender: NOVARTIS
  Company Number: TH-002147023-NVSC2024TH148266

PATIENT
  Age: 41 Year
  Sex: Female

DRUGS (5)
  1. CERITINIB [Suspect]
     Active Substance: CERITINIB
     Indication: Non-small cell lung cancer metastatic
     Dosage: 450 MG, QD (150) 3 TABS WITH LOW FAT MEAL)
     Route: 065
     Dates: start: 20201005
  2. CERITINIB [Suspect]
     Active Substance: CERITINIB
     Dosage: 300 MG, QD 150) 2 TABS WITH LOW FAT MEAL)
     Route: 065
     Dates: start: 20201208
  3. ZOLEDRONIC ACID [Concomitant]
     Active Substance: ZOLEDRONIC ACID
     Indication: Product used for unknown indication
     Dosage: UNK, Q3MO
     Route: 065
  4. MEMANTINE [Concomitant]
     Active Substance: MEMANTINE
     Indication: Product used for unknown indication
     Dosage: 20 MG, QD
     Route: 065
  5. DEXAMETHASONE [Concomitant]
     Active Substance: DEXAMETHASONE
     Indication: Product used for unknown indication
     Dosage: UNK
     Route: 065

REACTIONS (9)
  - Metastases to central nervous system [Unknown]
  - Calcification metastatic [Unknown]
  - Metastatic neoplasm [Unknown]
  - Bipolar disorder [Unknown]
  - Blood creatinine increased [Unknown]
  - Blood bilirubin decreased [Unknown]
  - Blood alkaline phosphatase increased [Unknown]
  - Diarrhoea [Unknown]
  - Therapy partial responder [Unknown]

NARRATIVE: CASE EVENT DATE: 20211201
